FAERS Safety Report 22086248 (Version 1)
Quarter: 2023Q1

REPORT INFORMATION
  Report Type: Report from Study
  Country: GB (occurrence: GB)
  Receive Date: 20230310
  Receipt Date: 20230310
  Transmission Date: 20230418
  Serious: Yes (Disabling)
  Sender: FDA-Public Use
  Company Number: GB-002147023-NVSC2023GB051790

PATIENT
  Sex: Female

DRUGS (2)
  1. COSENTYX [Suspect]
     Active Substance: SECUKINUMAB
     Indication: Psoriatic arthropathy
     Dosage: 300 MG, QMO (EVERY MONTH, ONE MONTH AFTER WEEK 4 INDUCTION DOSE), (2 PRE-FILLED 2 DISPOSABLE INJECTI
     Route: 058
  2. COSENTYX [Suspect]
     Active Substance: SECUKINUMAB
     Dosage: 300 MG, QMO (ON 24 FEB)
     Route: 058

REACTIONS (2)
  - Mobility decreased [Not Recovered/Not Resolved]
  - Lower respiratory tract infection [Recovered/Resolved]
